FAERS Safety Report 6419226-0 (Version None)
Quarter: 2009Q4

REPORT INFORMATION
  Report Type: 
  Country: None (occurrence: None)
  Receive Date: 20091029
  Receipt Date: 20091007
  Transmission Date: 20100525
  Serious: Yes (Other)
  Sender: FDA-Public Use
  Company Number: US-ASTRAZENECA-2007UW05650

PATIENT
  Age: 583 Month
  Sex: Female
  Weight: 131.5 kg

DRUGS (46)
  1. SEROQUEL [Suspect]
     Indication: DEPRESSION
     Route: 048
     Dates: start: 19890101
  2. SEROQUEL [Suspect]
     Indication: INSOMNIA
     Route: 048
     Dates: start: 19890101
  3. SEROQUEL [Suspect]
     Indication: ANXIETY
     Route: 048
     Dates: start: 19890101
  4. SEROQUEL [Suspect]
     Dosage: 25 MG INCREASING TO 200 MG
     Route: 048
     Dates: start: 20011101
  5. SEROQUEL [Suspect]
     Dosage: 25 MG INCREASING TO 200 MG
     Route: 048
     Dates: start: 20011101
  6. SEROQUEL [Suspect]
     Dosage: 25 MG INCREASING TO 200 MG
     Route: 048
     Dates: start: 20011101
  7. SEROQUEL [Suspect]
     Dosage: 50-225MG
     Route: 048
     Dates: start: 20011114
  8. SEROQUEL [Suspect]
     Dosage: 50-225MG
     Route: 048
     Dates: start: 20011114
  9. SEROQUEL [Suspect]
     Dosage: 50-225MG
     Route: 048
     Dates: start: 20011114
  10. SEROQUEL [Suspect]
     Route: 048
     Dates: start: 20000101, end: 20070801
  11. SEROQUEL [Suspect]
     Route: 048
     Dates: start: 20000101, end: 20070801
  12. SEROQUEL [Suspect]
     Route: 048
     Dates: start: 20000101, end: 20070801
  13. SEROQUEL [Suspect]
     Route: 048
     Dates: start: 20080101
  14. SEROQUEL [Suspect]
     Route: 048
     Dates: start: 20080101
  15. SEROQUEL [Suspect]
     Route: 048
     Dates: start: 20080101
  16. VALIUM [Concomitant]
     Dosage: 5MG-10MG
     Route: 048
  17. VALIUM [Concomitant]
     Dates: start: 19940101
  18. LEXAPRO [Concomitant]
     Dosage: 10MG-20MG
     Route: 048
  19. LEXAPRO [Concomitant]
     Dates: start: 19940101
  20. NOVOLOG [Concomitant]
     Route: 065
  21. HYDROCODONE BITARTRATE AND ACETAMINOPHEN [Concomitant]
     Route: 048
  22. METHADONE [Concomitant]
     Route: 048
     Dates: start: 20050101, end: 20090101
  23. DOCUSATE [Concomitant]
     Route: 065
  24. TRAMADOL HCL [Concomitant]
     Route: 065
  25. VYTORIN [Concomitant]
     Route: 065
  26. NITROGLYCERIN [Concomitant]
     Route: 060
  27. BENAZEPRIL HYDROCHLORIDE [Concomitant]
     Route: 065
  28. AMBIEN [Concomitant]
     Route: 065
  29. PREVACID [Concomitant]
     Route: 065
  30. LONOX [Concomitant]
     Route: 065
  31. COMBIVENT [Concomitant]
     Route: 055
  32. LOPERAMIDE HCL [Concomitant]
     Route: 065
  33. HYOSCYAMINE [Concomitant]
     Route: 065
  34. BYETTA [Concomitant]
     Route: 065
  35. METFORMIN HCL [Concomitant]
     Route: 065
  36. LYRICA [Concomitant]
     Dosage: 50MG-100MG
     Route: 065
  37. AMITRIPTYLINE [Concomitant]
     Route: 065
  38. DIOVAN [Concomitant]
     Route: 065
  39. OMEPRAZOLE [Concomitant]
     Route: 065
  40. AVANDIA [Concomitant]
     Route: 065
  41. PROCRIT [Concomitant]
     Route: 065
  42. FUROSEMIDE [Concomitant]
     Route: 065
  43. FLUCONAZOLE [Concomitant]
     Route: 065
  44. ASPIRIN [Concomitant]
     Route: 048
  45. GEODON [Concomitant]
     Dates: start: 20040101, end: 20080101
  46. ZOLPIDEM [Concomitant]
     Dates: end: 20090101

REACTIONS (27)
  - ABDOMINAL PAIN [None]
  - ARTHRALGIA [None]
  - BACK PAIN [None]
  - BLOOD CHOLESTEROL INCREASED [None]
  - CAROTID ARTERY STENOSIS [None]
  - CHEST PAIN [None]
  - CHRONIC OBSTRUCTIVE PULMONARY DISEASE [None]
  - CONSTIPATION [None]
  - CORONARY ARTERY DISEASE [None]
  - DISLOCATION OF VERTEBRA [None]
  - EAR PAIN [None]
  - FIBULA FRACTURE [None]
  - HALLUCINATION, AUDITORY [None]
  - HYPERLIPIDAEMIA [None]
  - JOINT SPRAIN [None]
  - MUSCLE SPASMS [None]
  - NASOPHARYNGITIS [None]
  - NECK INJURY [None]
  - NEUROPATHY PERIPHERAL [None]
  - PAIN IN EXTREMITY [None]
  - PARANOIA [None]
  - RASH [None]
  - RENAL CYST [None]
  - RENAL FAILURE [None]
  - RHINITIS ALLERGIC [None]
  - SYNCOPE [None]
  - TYPE 2 DIABETES MELLITUS [None]
